FAERS Safety Report 7704351-4 (Version None)
Quarter: 2011Q3

REPORT INFORMATION
  Report Type: 
  Country: None (occurrence: None)
  Receive Date: 20110823
  Receipt Date: 20110818
  Transmission Date: 20111222
  Serious: Yes (Disabling)
  Sender: FDA-Public Use
  Company Number: CA-MERCK-1108USA02237

PATIENT
  Age: 67 Year
  Sex: Female
  Weight: 66 kg

DRUGS (7)
  1. FOSAMAX PLUS D [Suspect]
     Route: 048
  2. CHONDROITIN SULFATE SODIUM AND GLUCOSAMINE SULFATE [Concomitant]
     Route: 048
  3. PREDNISONE [Concomitant]
     Route: 048
  4. OMEGA-3 MARINE TRIGLYCERIDES [Concomitant]
     Route: 048
  5. MAGNESIUM (UNSPECIFIED) [Concomitant]
     Route: 065
  6. ASCORBIC ACID [Concomitant]
     Route: 048
  7. CALCIUM CARBONATE [Concomitant]
     Route: 065

REACTIONS (6)
  - HYPOKINESIA [None]
  - BONE PAIN [None]
  - ARTHRALGIA [None]
  - MYALGIA [None]
  - MUSCULOSKELETAL PAIN [None]
  - JOINT RANGE OF MOTION DECREASED [None]
